FAERS Safety Report 15853174 (Version 1)
Quarter: 2018Q4

REPORT INFORMATION
  Report Type: Spontaneous
  Country: US (occurrence: US)
  Receive Date: 20181226
  Receipt Date: 20181226
  Transmission Date: 20190205
  Serious: Yes (Other)
  Sender: FDA-Public Use
  Company Number: None

PATIENT
  Age: 46 Year
  Sex: Female
  Weight: 55.34 kg

DRUGS (1)
  1. AIMOVIG [Suspect]
     Active Substance: ERENUMAB-AOOE
     Indication: MIGRAINE
     Dosage: ?          QUANTITY:ONE INJ. 70MG/ML;OTHER FREQUENCY:ONE INJ/ MONTH;OTHER ROUTE:INJECTION?
     Dates: start: 20180918, end: 20181119

REACTIONS (5)
  - Muscle spasms [None]
  - Screaming [None]
  - Pain [None]
  - Fall [None]
  - Musculoskeletal disorder [None]

NARRATIVE: CASE EVENT DATE: 20181020
